FAERS Safety Report 9193594 (Version 1)
Quarter: 2013Q1

REPORT INFORMATION
  Report Type: Spontaneous
  Country: US (occurrence: US)
  Receive Date: 20130327
  Receipt Date: 20130327
  Transmission Date: 20140127
  Serious: Yes (Other)
  Sender: FDA-Public Use
  Company Number: US-JNJFOC-20130308769

PATIENT
  Age: 31 Year
  Sex: Male

DRUGS (4)
  1. NICOTINE POLACRILEX [Suspect]
     Indication: SMOKING CESSATION THERAPY
     Dosage: 1 YEAR.
     Route: 065
  2. NICOTINE POLACRILEX [Suspect]
     Indication: SMOKING CESSATION THERAPY
     Dosage: 1 YEAR.
     Route: 065
  3. NICOTINE POLACRILEX [Suspect]
     Indication: SMOKING CESSATION THERAPY
     Dosage: SINCE 1 YEAR.
     Route: 065
  4. NICOTINE POLACRILEX GUM 2 MG MINT [Suspect]
     Indication: SMOKING CESSATION THERAPY
     Dosage: SINCE 1 YEAR.
     Route: 065

REACTIONS (3)
  - Nicotine dependence [Not Recovered/Not Resolved]
  - Intentional drug misuse [Unknown]
  - Product quality issue [Unknown]
